FAERS Safety Report 4679816-2 (Version None)
Quarter: 2005Q2

REPORT INFORMATION
  Report Type: 
  Country: None (occurrence: None)
  Receive Date: 20050531
  Receipt Date: 20050520
  Transmission Date: 20051028
  Serious: Yes (Other)
  Sender: FDA-Public Use
  Company Number: A0559952A

PATIENT
  Sex: Male

DRUGS (4)
  1. WELLBUTRIN SR [Suspect]
     Indication: DEPRESSION
     Dosage: ORAL
     Route: 048
     Dates: start: 20030101
  2. HYDROMORPHONE HCL [Concomitant]
  3. RISPERIDONE [Concomitant]
  4. AMITRIPTYLINE [Concomitant]

REACTIONS (2)
  - THROMBOPHLEBITIS [None]
  - THROMBOSIS [None]
